FAERS Safety Report 6075520-7 (Version None)
Quarter: 2009Q1

REPORT INFORMATION
  Report Type: 
  Country: None (occurrence: None)
  Receive Date: 20090209
  Receipt Date: 20090201
  Transmission Date: 20090719
  Serious: Yes (Hospitalization)
  Sender: FDA-Public Use
  Company Number: 2008SP022701

PATIENT
  Age: 60 Year
  Sex: Female
  Weight: 61.2356 kg

DRUGS (21)
  1. PEG-INTRON [Suspect]
     Indication: HEPATITIS C
     Dosage: 96 MCG;QW; SC
     Route: 058
     Dates: start: 20080815
  2. REBETOL [Suspect]
     Indication: HEPATITIS C
     Dosage: PO
     Route: 048
     Dates: start: 20080815
  3. VICODIN [Suspect]
     Indication: PAIN
  4. COUMADIN [Concomitant]
  5. CITALOPRAM HYDROBROMIDE [Concomitant]
  6. BUPROPION HCL [Concomitant]
  7. ZOLPIDEM [Concomitant]
  8. LEVOTHROID [Concomitant]
  9. FLUTICASONE PROPIONATE [Concomitant]
  10. METFORMIN [Concomitant]
  11. PROCHLORPERAZINE [Concomitant]
  12. MECLIZINE [Concomitant]
  13. HYDROCHLOROTHIAZIDE [Concomitant]
  14. ATENOLOL [Concomitant]
  15. LIDOCAINE [Concomitant]
  16. ACETAMINOPHEN AND HYDROCODONE BITARTRATE [Concomitant]
  17. WARFARIN [Concomitant]
  18. ONDANSETRON [Concomitant]
  19. METOCLOPRAMIDE [Concomitant]
  20. LIDOCAINE 2% [Concomitant]
  21. LOVASTATIN [Concomitant]

REACTIONS (25)
  - BALANCE DISORDER [None]
  - BLOOD TRIGLYCERIDES INCREASED [None]
  - BURNING SENSATION [None]
  - CRYING [None]
  - DECREASED APPETITE [None]
  - DISCOMFORT [None]
  - DISTURBANCE IN ATTENTION [None]
  - DIZZINESS [None]
  - FALL [None]
  - FATIGUE [None]
  - GAIT DISTURBANCE [None]
  - HEADACHE [None]
  - MEMORY IMPAIRMENT [None]
  - MUSCLE ATROPHY [None]
  - MUSCULOSKELETAL PAIN [None]
  - MYALGIA [None]
  - NAUSEA [None]
  - PERIARTHRITIS [None]
  - PHOTOPHOBIA [None]
  - PYREXIA [None]
  - RETCHING [None]
  - TEARFULNESS [None]
  - VERTIGO [None]
  - VOMITING [None]
  - WEIGHT DECREASED [None]
